FAERS Safety Report 7827152-5 (Version None)
Quarter: 2011Q4

REPORT INFORMATION
  Report Type: 
  Country: None (occurrence: None)
  Receive Date: 20111019
  Receipt Date: 20111019
  Transmission Date: 20120403
  Serious: Yes (Hospitalization, Other)
  Sender: FDA-Public Use
  Company Number: None

PATIENT
  Sex: Female
  Weight: 69.8539 kg

DRUGS (2)
  1. RECLAST [Suspect]
     Indication: OSTEOPOROSIS
     Dosage: 5MG IV -ONCE A YEAR IV
     Route: 042
     Dates: start: 20110801
  2. RECLAST [Suspect]
     Indication: OSTEITIS DEFORMANS
     Dosage: 5MG IV -ONCE A YEAR IV
     Route: 042
     Dates: start: 20110801

REACTIONS (5)
  - SYNCOPE [None]
  - PAIN [None]
  - INFLAMMATION [None]
  - CHILLS [None]
  - JOINT SWELLING [None]
